FAERS Safety Report 6414202-6 (Version None)
Quarter: 2009Q4

REPORT INFORMATION
  Report Type: 
  Country: None (occurrence: None)
  Receive Date: 20091026
  Receipt Date: 20091023
  Transmission Date: 20100525
  Serious: Yes (Other)
  Sender: FDA-Public Use
  Company Number: ZA-PFIZER INC-2009262203

PATIENT
  Age: 2 Month

DRUGS (1)
  1. ZYVOXID [Suspect]

REACTIONS (2)
  - CSF TEST ABNORMAL [None]
  - OCULAR ICTERUS [None]
